FAERS Safety Report 5959451-6 (Version None)
Quarter: 2008Q4

REPORT INFORMATION
  Report Type: 
  Country: None (occurrence: None)
  Receive Date: 20081119
  Receipt Date: 20081119
  Transmission Date: 20090506
  Serious: Yes (Life-Threatening)
  Sender: FDA-Public Use
  Company Number: None

PATIENT
  Age: 64 Year
  Sex: Male
  Weight: 75 kg

DRUGS (11)
  1. SIROLIMUS [Suspect]
     Indication: IMMUNOSUPPRESSION
     Dosage: 2 MG TWICE DAILY PO
     Route: 048
     Dates: start: 20080520, end: 20080630
  2. ACYCLOVIR [Concomitant]
  3. BACTRIM [Concomitant]
  4. NYSTATIN [Concomitant]
  5. DOCUSATE [Concomitant]
  6. M.V.I. [Concomitant]
  7. PROTONIX [Concomitant]
  8. FUROSEMIDE [Concomitant]
  9. ASCORBIC ACID [Concomitant]
  10. ZINC [Concomitant]
  11. PREDNISONE TAB [Concomitant]

REACTIONS (2)
  - SNEEZING [None]
  - WOUND DEHISCENCE [None]
